FAERS Safety Report 9230955 (Version 3)
Quarter: 2013Q2

REPORT INFORMATION
  Report Type: Spontaneous
  Country: CA (occurrence: CA)
  Receive Date: 20130415
  Receipt Date: 20130621
  Transmission Date: 20140414
  Serious: Yes (Hospitalization)
  Sender: FDA-Public Use
  Company Number: CA-ROCHE-1211580

PATIENT
  Age: 12 Year
  Sex: Male

DRUGS (7)
  1. XOLAIR [Suspect]
     Indication: ASTHMA
     Dosage: VIALS
     Route: 058
     Dates: start: 20120316
  2. XOLAIR [Suspect]
     Route: 058
     Dates: start: 20130205
  3. XOLAIR [Suspect]
     Route: 058
     Dates: start: 20130219
  4. XOLAIR [Suspect]
     Route: 065
     Dates: start: 20130305
  5. XOLAIR [Suspect]
     Route: 065
     Dates: start: 20130611
  6. SINGULAIR [Concomitant]
  7. ADVAIR [Concomitant]

REACTIONS (10)
  - Pulmonary function test decreased [Unknown]
  - Chest discomfort [Recovered/Resolved]
  - Dysphonia [Unknown]
  - Injection site pain [Unknown]
  - Rash [Unknown]
  - Pyrexia [Recovered/Resolved]
  - Headache [Unknown]
  - Asthma [Unknown]
  - Influenza [Unknown]
  - Wheezing [Unknown]
